FAERS Safety Report 7545343-8 (Version None)
Quarter: 2011Q2

REPORT INFORMATION
  Report Type: 
  Country: None (occurrence: None)
  Receive Date: 20110607
  Receipt Date: 20110523
  Transmission Date: 20111010
  Serious: Yes (Hospitalization)
  Sender: FDA-Public Use
  Company Number: 2011MA006243

PATIENT
  Age: 23 Year
  Sex: Male

DRUGS (1)
  1. TRAMADOL HCL [Suspect]
     Indication: PAIN
     Dosage: 2000 MG; OD; PO
     Route: 048

REACTIONS (4)
  - ANXIETY [None]
  - DRUG DEPENDENCE [None]
  - MUSCLE SPASMS [None]
  - PALPITATIONS [None]
